FAERS Safety Report 7033653-2 (Version None)
Quarter: 2010Q4

REPORT INFORMATION
  Report Type: 
  Country: None (occurrence: None)
  Receive Date: 20101005
  Receipt Date: 20100927
  Transmission Date: 20110411
  Serious: Yes (Death, Hospitalization)
  Sender: FDA-Public Use
  Company Number: 2010-2000

PATIENT
  Age: 22 Year
  Sex: Male
  Weight: 75 kg

DRUGS (3)
  1. DYSPORT [Suspect]
     Indication: DIPLOPIA
     Dosage: 10 UNITS (10 UNITS, SINGLE CYCLE)
     Dates: start: 20100429, end: 20100429
  2. TEMODAL [Concomitant]
  3. UNICAINE (ANAESTHETICS, LOCAL) [Concomitant]

REACTIONS (5)
  - ABASIA [None]
  - DYSPHAGIA [None]
  - GENERAL PHYSICAL HEALTH DETERIORATION [None]
  - NEUROLOGICAL DECOMPENSATION [None]
  - RESPIRATORY DISORDER [None]
